FAERS Safety Report 17764850 (Version 1)
Quarter: 2020Q2

REPORT INFORMATION
  Report Type: Spontaneous
  Country: US (occurrence: US)
  Receive Date: 20200511
  Receipt Date: 20200511
  Transmission Date: 20200714
  Serious: Yes (Hospitalization, Disabling, Other)
  Sender: FDA-Public Use
  Company Number: US-ELI_LILLY_AND_COMPANY-US202005001635

PATIENT
  Sex: Male

DRUGS (1)
  1. HUMULIN R [Suspect]
     Active Substance: INSULIN HUMAN
     Indication: TYPE 2 DIABETES MELLITUS
     Dosage: 110 U, DAILY
     Route: 065
     Dates: start: 2018

REACTIONS (4)
  - Weight increased [Unknown]
  - Blood glucose increased [Unknown]
  - Neuropathic arthropathy [Unknown]
  - Diabetes mellitus inadequate control [Unknown]
